FAERS Safety Report 9023012 (Version 1)
Quarter: 2013Q1

REPORT INFORMATION
  Report Type: Spontaneous
  Country: US (occurrence: US)
  Receive Date: 20130120
  Receipt Date: 20130120
  Transmission Date: 20140127
  Serious: No
  Sender: FDA-Public Use
  Company Number: US-ALLERGAN-1215665US

PATIENT
  Age: 93 Year
  Sex: Female

DRUGS (2)
  1. BOTOX? [Suspect]
     Indication: BLEPHAROSPASM
     Dosage: UNK UNK, SINGLE
     Route: 030
     Dates: start: 201207, end: 201207
  2. BOTOX? [Suspect]

REACTIONS (5)
  - Visual impairment [Unknown]
  - Photophobia [Unknown]
  - Head injury [Unknown]
  - Laceration [Unknown]
  - Fall [Unknown]
